FAERS Safety Report 19981091 (Version 1)
Quarter: 2021Q4

REPORT INFORMATION
  Report Type: Spontaneous
  Country: NL (occurrence: DE)
  Receive Date: 20211021
  Receipt Date: 20211021
  Transmission Date: 20220304
  Serious: Yes (Hospitalization)
  Sender: FDA-Public Use
  Company Number: DE-ASTRAZENECA-2020SE57342

PATIENT
  Age: 68 Year
  Sex: Female

DRUGS (72)
  1. CARBOPLATIN [Suspect]
     Active Substance: CARBOPLATIN
     Indication: Ovarian cancer
     Route: 042
     Dates: start: 20200311, end: 20200311
  2. CARBOPLATIN [Suspect]
     Active Substance: CARBOPLATIN
     Route: 042
     Dates: start: 20200127, end: 20200127
  3. CARBOPLATIN [Suspect]
     Active Substance: CARBOPLATIN
     Route: 042
     Dates: start: 20200401, end: 20200401
  4. CARBOPLATIN [Suspect]
     Active Substance: CARBOPLATIN
     Route: 042
     Dates: start: 20200429, end: 20200429
  5. CARBOPLATIN [Suspect]
     Active Substance: CARBOPLATIN
     Route: 042
     Dates: start: 20200520, end: 20200520
  6. CARBOPLATIN [Suspect]
     Active Substance: CARBOPLATIN
     Route: 042
     Dates: start: 20200220, end: 20200220
  7. PACLITAXEL [Suspect]
     Active Substance: PACLITAXEL
     Indication: Ovarian cancer
     Route: 042
     Dates: start: 20200311, end: 20200311
  8. PACLITAXEL [Suspect]
     Active Substance: PACLITAXEL
     Route: 042
     Dates: start: 20200429, end: 20200429
  9. PACLITAXEL [Suspect]
     Active Substance: PACLITAXEL
     Route: 042
     Dates: start: 20200520, end: 20200520
  10. PACLITAXEL [Suspect]
     Active Substance: PACLITAXEL
     Route: 042
     Dates: start: 20200401, end: 20200401
  11. PACLITAXEL [Suspect]
     Active Substance: PACLITAXEL
     Route: 042
     Dates: start: 20200127, end: 20200127
  12. PACLITAXEL [Suspect]
     Active Substance: PACLITAXEL
     Route: 042
     Dates: start: 20200220, end: 20200220
  13. DURVALUMAB [Suspect]
     Active Substance: DURVALUMAB
     Indication: Ovarian cancer
     Route: 042
     Dates: start: 20200812, end: 20200922
  14. DURVALUMAB [Suspect]
     Active Substance: DURVALUMAB
     Route: 042
     Dates: start: 20210105, end: 20210105
  15. DURVALUMAB [Suspect]
     Active Substance: DURVALUMAB
     Route: 042
     Dates: start: 20200331, end: 20200331
  16. DURVALUMAB [Suspect]
     Active Substance: DURVALUMAB
     Route: 042
     Dates: start: 20210127, end: 20210127
  17. DURVALUMAB [Suspect]
     Active Substance: DURVALUMAB
     Route: 042
     Dates: start: 20210330, end: 20210330
  18. DURVALUMAB [Suspect]
     Active Substance: DURVALUMAB
     Route: 042
     Dates: start: 20200310, end: 20200310
  19. DURVALUMAB [Suspect]
     Active Substance: DURVALUMAB
     Route: 042
     Dates: start: 20210427, end: 20210427
  20. DURVALUMAB [Suspect]
     Active Substance: DURVALUMAB
     Route: 042
     Dates: start: 20201013, end: 20210105
  21. DURVALUMAB [Suspect]
     Active Substance: DURVALUMAB
     Route: 042
     Dates: start: 20200721, end: 20200721
  22. DURVALUMAB [Suspect]
     Active Substance: DURVALUMAB
     Route: 042
     Dates: start: 20201124, end: 20201124
  23. DURVALUMAB [Suspect]
     Active Substance: DURVALUMAB
     Route: 042
     Dates: start: 20200922, end: 20200922
  24. DURVALUMAB [Suspect]
     Active Substance: DURVALUMAB
     Route: 042
     Dates: start: 20201103, end: 20201103
  25. DURVALUMAB [Suspect]
     Active Substance: DURVALUMAB
     Route: 042
     Dates: start: 20200609, end: 20200609
  26. DURVALUMAB [Suspect]
     Active Substance: DURVALUMAB
     Route: 042
     Dates: start: 20200519, end: 20200519
  27. DURVALUMAB [Suspect]
     Active Substance: DURVALUMAB
     Route: 042
     Dates: start: 20210309, end: 20210309
  28. DURVALUMAB [Suspect]
     Active Substance: DURVALUMAB
     Route: 042
     Dates: start: 20200901, end: 20200901
  29. DURVALUMAB [Suspect]
     Active Substance: DURVALUMAB
     Route: 042
     Dates: start: 20200630, end: 20200630
  30. DURVALUMAB [Suspect]
     Active Substance: DURVALUMAB
     Route: 042
     Dates: start: 20200428, end: 20200428
  31. DURVALUMAB [Suspect]
     Active Substance: DURVALUMAB
     Route: 042
     Dates: start: 20210216, end: 20210216
  32. DURVALUMAB [Suspect]
     Active Substance: DURVALUMAB
     Route: 042
     Dates: start: 20200219, end: 20200219
  33. DURVALUMAB [Suspect]
     Active Substance: DURVALUMAB
     Route: 042
     Dates: start: 20210518, end: 20210518
  34. DURVALUMAB [Suspect]
     Active Substance: DURVALUMAB
     Route: 042
     Dates: start: 20201215, end: 20201215
  35. BEVACIZUMAB [Concomitant]
     Active Substance: BEVACIZUMAB
     Indication: Ovarian cancer
     Route: 042
     Dates: start: 20210127, end: 20210127
  36. BEVACIZUMAB [Concomitant]
     Active Substance: BEVACIZUMAB
     Route: 042
     Dates: start: 20200219, end: 20200219
  37. BEVACIZUMAB [Concomitant]
     Active Substance: BEVACIZUMAB
     Route: 042
     Dates: start: 20200721, end: 20200721
  38. BEVACIZUMAB [Concomitant]
     Active Substance: BEVACIZUMAB
     Route: 042
     Dates: start: 20200428, end: 20200428
  39. BEVACIZUMAB [Concomitant]
     Active Substance: BEVACIZUMAB
     Route: 042
     Dates: start: 20210309, end: 20210309
  40. BEVACIZUMAB [Concomitant]
     Active Substance: BEVACIZUMAB
     Route: 042
     Dates: start: 20210518, end: 20210518
  41. BEVACIZUMAB [Concomitant]
     Active Substance: BEVACIZUMAB
     Route: 042
     Dates: start: 20210330, end: 20210330
  42. BEVACIZUMAB [Concomitant]
     Active Substance: BEVACIZUMAB
     Route: 042
     Dates: start: 20200519, end: 20200519
  43. BEVACIZUMAB [Concomitant]
     Active Substance: BEVACIZUMAB
     Route: 042
     Dates: start: 20210216, end: 20210216
  44. BEVACIZUMAB [Concomitant]
     Active Substance: BEVACIZUMAB
     Route: 042
     Dates: start: 20200310, end: 20200310
  45. BEVACIZUMAB [Concomitant]
     Active Substance: BEVACIZUMAB
     Route: 042
     Dates: start: 20200331, end: 20200331
  46. BEVACIZUMAB [Concomitant]
     Active Substance: BEVACIZUMAB
     Route: 042
     Dates: start: 20200331, end: 20200331
  47. BEVACIZUMAB [Concomitant]
     Active Substance: BEVACIZUMAB
     Route: 042
     Dates: start: 20210427, end: 20210427
  48. BEVACIZUMAB [Concomitant]
     Active Substance: BEVACIZUMAB
     Route: 042
     Dates: start: 20210427, end: 20210427
  49. BEVACIZUMAB [Concomitant]
     Active Substance: BEVACIZUMAB
     Route: 042
     Dates: start: 20200922, end: 20200922
  50. BEVACIZUMAB [Concomitant]
     Active Substance: BEVACIZUMAB
     Route: 042
     Dates: start: 20210105, end: 20210105
  51. BEVACIZUMAB [Concomitant]
     Active Substance: BEVACIZUMAB
     Route: 042
     Dates: start: 20210127, end: 20210127
  52. BEVACIZUMAB [Concomitant]
     Active Substance: BEVACIZUMAB
     Route: 042
     Dates: start: 20210518, end: 20210518
  53. BEVACIZUMAB [Concomitant]
     Active Substance: BEVACIZUMAB
     Route: 042
     Dates: start: 20201215, end: 20201215
  54. BEVACIZUMAB [Concomitant]
     Active Substance: BEVACIZUMAB
     Route: 042
     Dates: start: 20201103, end: 20201103
  55. BEVACIZUMAB [Concomitant]
     Active Substance: BEVACIZUMAB
     Route: 042
     Dates: start: 20210309, end: 20210309
  56. BEVACIZUMAB [Concomitant]
     Active Substance: BEVACIZUMAB
     Route: 042
     Dates: start: 20201124, end: 20201124
  57. BEVACIZUMAB [Concomitant]
     Active Substance: BEVACIZUMAB
     Route: 042
     Dates: start: 20201103, end: 20201103
  58. BEVACIZUMAB [Concomitant]
     Active Substance: BEVACIZUMAB
     Route: 042
     Dates: start: 20201215, end: 20201215
  59. BEVACIZUMAB [Concomitant]
     Active Substance: BEVACIZUMAB
     Route: 042
     Dates: start: 20201124, end: 20201124
  60. BEVACIZUMAB [Concomitant]
     Active Substance: BEVACIZUMAB
     Route: 042
     Dates: start: 20200812, end: 20200812
  61. BEVACIZUMAB [Concomitant]
     Active Substance: BEVACIZUMAB
     Route: 042
     Dates: start: 20210518, end: 20210518
  62. BEVACIZUMAB [Concomitant]
     Active Substance: BEVACIZUMAB
     Route: 042
     Dates: start: 20200901, end: 20200901
  63. BEVACIZUMAB [Concomitant]
     Active Substance: BEVACIZUMAB
     Route: 042
     Dates: start: 20201013, end: 20201013
  64. BEVACIZUMAB [Concomitant]
     Active Substance: BEVACIZUMAB
     Route: 042
     Dates: start: 20210427, end: 20210427
  65. BEVACIZUMAB [Concomitant]
     Active Substance: BEVACIZUMAB
     Route: 042
     Dates: start: 20210105, end: 20210105
  66. BEVACIZUMAB [Concomitant]
     Active Substance: BEVACIZUMAB
     Route: 042
     Dates: start: 20200630, end: 20200630
  67. BEVACIZUMAB [Concomitant]
     Active Substance: BEVACIZUMAB
     Route: 042
     Dates: start: 20210216, end: 20210216
  68. BEVACIZUMAB [Concomitant]
     Active Substance: BEVACIZUMAB
     Route: 042
     Dates: start: 20210330, end: 20210330
  69. BEVACIZUMAB [Concomitant]
     Active Substance: BEVACIZUMAB
     Route: 042
     Dates: start: 20200609, end: 20200609
  70. BEVACIZUMAB [Concomitant]
     Active Substance: BEVACIZUMAB
     Route: 042
     Dates: start: 20210309, end: 20210309
  71. BEVACIZUMAB [Concomitant]
     Active Substance: BEVACIZUMAB
     Route: 042
     Dates: start: 20210330, end: 20210330
  72. OMEPRAZOLE [Concomitant]
     Active Substance: OMEPRAZOLE
     Indication: Chronic gastritis
     Dosage: 20 MG
     Route: 048
     Dates: start: 2015

REACTIONS (1)
  - Staphylococcal infection [Recovered/Resolved]

NARRATIVE: CASE EVENT DATE: 20200414
